FAERS Safety Report 15130679 (Version 1)
Quarter: 2018Q4

REPORT INFORMATION
  Report Type: Spontaneous
  Country: US (occurrence: US)
  Receive Date: 20180711
  Receipt Date: 20180711
  Transmission Date: 20190204
  Serious: Yes (Other)
  Sender: FDA-Public Use
  Company Number: US-PFIZER INC-2018276126

PATIENT
  Age: 41 Year
  Sex: Female

DRUGS (7)
  1. CLOFAZIMINE [Suspect]
     Active Substance: CLOFAZIMINE
     Indication: TUBERCULOSIS
     Dosage: 100 MG, 1X/DAY (QD)
     Route: 048
     Dates: start: 20160322, end: 20171120
  2. CYCLOSERINE. [Suspect]
     Active Substance: CYCLOSERINE
     Indication: TUBERCULOSIS
     Dosage: 750 MG, 1X/DAY (QD)
     Route: 048
     Dates: start: 20160322, end: 20171120
  3. DELAMANID [Suspect]
     Active Substance: DELAMANID
     Indication: TUBERCULOSIS
     Dosage: UNK, 1X/DAY (200 UNK, QD)
     Route: 048
     Dates: start: 20160322
  4. PAS [Suspect]
     Active Substance: AMINOSALICYLIC ACID
     Indication: TUBERCULOSIS
     Dosage: UNK UNK, 1X/DAY (8000 UNK, QD)
     Route: 048
     Dates: start: 20160322
  5. AMX/CLV [Suspect]
     Active Substance: AMOXICILLIN\CLAVULANATE POTASSIUM
     Indication: TUBERCULOSIS
     Dosage: UNK UNK, 1X/DAY (2000 UNK, QD)
     Route: 048
     Dates: start: 20160322
  6. LINEZOLID. [Suspect]
     Active Substance: LINEZOLID
     Indication: TUBERCULOSIS
     Dosage: 600 MG, 1X/DAY (QD)
     Route: 048
     Dates: start: 20160930, end: 20171120
  7. IMIPENEM [Suspect]
     Active Substance: IMIPENEM
     Indication: TUBERCULOSIS
     Dosage: UNK, 1X/DAY (2 UNK, QD)
     Route: 042
     Dates: start: 20160322

REACTIONS (3)
  - Product use in unapproved indication [Unknown]
  - Aspartate aminotransferase increased [Not Recovered/Not Resolved]
  - Alanine aminotransferase increased [Not Recovered/Not Resolved]

NARRATIVE: CASE EVENT DATE: 20160701
